FAERS Safety Report 8204585-9 (Version None)
Quarter: 2012Q1

REPORT INFORMATION
  Report Type: 
  Country: None (occurrence: None)
  Receive Date: 20120313
  Receipt Date: 20120308
  Transmission Date: 20120608
  Serious: Yes (Other)
  Sender: FDA-Public Use
  Company Number: CO-PFIZER INC-2012008566

PATIENT
  Age: 47 Year
  Sex: Female

DRUGS (3)
  1. ALDACTONE [Suspect]
     Indication: ADRENAL DISORDER
  2. TAMOXIFEN [Concomitant]
     Dosage: UNK
  3. ALDACTONE [Suspect]
     Indication: ACNE
     Dosage: 100 MG, 1X/DAY
     Route: 048
     Dates: start: 19870101

REACTIONS (3)
  - UTERINE HAEMORRHAGE [None]
  - ANAEMIA [None]
  - BREAST CANCER [None]
